FAERS Safety Report 21658058 (Version 1)
Quarter: 2022Q4

REPORT INFORMATION
  Report Type: Spontaneous
  Country: FR (occurrence: FR)
  Receive Date: 20221129
  Receipt Date: 20221129
  Transmission Date: 20230112
  Serious: Yes (Death)
  Sender: FDA-Public Use
  Company Number: None

PATIENT
  Age: 71 Year
  Sex: Female
  Weight: 57.9 kg

DRUGS (14)
  1. RAMIPRIL [Suspect]
     Active Substance: RAMIPRIL
     Indication: Hypertension
     Dosage: 5 MILLIGRAM, QD
     Route: 048
     Dates: start: 20220321
  2. VITAMINS [Suspect]
     Active Substance: VITAMINS
     Indication: Vitamin supplementation
     Dosage: (DRP) (DROP (1/12 MILLILITRE)
     Route: 048
     Dates: start: 20220324
  3. VITAMIN B1 [Suspect]
     Active Substance: THIAMINE HYDROCHLORIDE
     Indication: Vitamin supplementation
     Dosage: 250 MILLIGRAM, QD
     Route: 048
     Dates: start: 20220324
  4. MAGNESIUM [Suspect]
     Active Substance: MAGNESIUM
     Indication: Mineral supplementation
     Dosage: 3 DOSAGE FORM, QD
     Route: 048
     Dates: start: 20220324
  5. CALCIUM PHOSPHATE, DIBASIC, ANHYDROUS\MAGNESIUM GLYCEROPHOSPHATE\PHOSP [Suspect]
     Active Substance: CALCIUM PHOSPHATE, DIBASIC, ANHYDROUS\MAGNESIUM GLYCEROPHOSPHATE\PHOSPHORIC ACID\SODIUM PHOSPHATE, D
     Indication: Mineral supplementation
     Dosage: 120 GTT DROPS, QD
     Route: 048
     Dates: start: 20220324
  6. ETHAMBUTOL HYDROCHLORIDE [Suspect]
     Active Substance: ETHAMBUTOL HYDROCHLORIDE
     Indication: Pulmonary tuberculosis
     Dosage: 1000 MILLIGRAM, QD
     Route: 048
     Dates: start: 20220315
  7. ISONIAZID [Suspect]
     Active Substance: ISONIAZID
     Indication: Pulmonary tuberculosis
     Dosage: 300 MILLIGRAM, QD
     Route: 048
     Dates: start: 20220315, end: 20220524
  8. ENTECAVIR ARROW [Concomitant]
     Indication: Hepatitis B
     Dosage: 0.5 MILLIGRAM, QD
     Route: 048
  9. RIFAMPIN [Concomitant]
     Active Substance: RIFAMPIN
     Indication: Pulmonary tuberculosis
     Dosage: 600 MILLIGRAM, QD
     Route: 048
     Dates: start: 20220315, end: 20220430
  10. RIFAMPIN [Concomitant]
     Active Substance: RIFAMPIN
     Dosage: 600 MILLIGRAM, QD
     Route: 048
     Dates: start: 20220513
  11. BACTRIM [Concomitant]
     Active Substance: SULFAMETHOXAZOLE\TRIMETHOPRIM
     Indication: Opportunistic infection prophylaxis
     Dosage: 1 DOSAGE FORM, QD
     Route: 048
     Dates: start: 20220326, end: 20220421
  12. LOVENOX [Concomitant]
     Active Substance: ENOXAPARIN SODIUM
     Indication: Thrombosis prophylaxis
     Dosage: 4000 INTERNATIONAL UNIT, QD
     Route: 058
     Dates: start: 20220314, end: 20220421
  13. DAFALGAN [Concomitant]
     Active Substance: ACETAMINOPHEN
     Indication: Pain
     Dosage: UNK
     Route: 048
  14. VALACYCLOVIR [Concomitant]
     Active Substance: VALACYCLOVIR HYDROCHLORIDE
     Indication: Opportunistic infection prophylaxis
     Dosage: 1000 MILLIGRAM, QD
     Route: 048

REACTIONS (1)
  - Thrombocytopenia [Fatal]

NARRATIVE: CASE EVENT DATE: 20220405
